FAERS Safety Report 5353891-4 (Version None)
Quarter: 2007Q2

REPORT INFORMATION
  Report Type: 
  Country: None (occurrence: None)
  Receive Date: 20070518
  Receipt Date: 20070327
  Transmission Date: 20071010
  Serious: No
  Sender: FDA-Public Use
  Company Number: TPA2006A01358

PATIENT
  Age: 60 Year
  Sex: Female
  Weight: 58.9676 kg

DRUGS (8)
  1. ROZEREM [Suspect]
     Indication: INSOMNIA
     Dosage: 8 MG, QHS, PER ORAL
     Route: 048
     Dates: start: 20050901, end: 20061001
  2. ADVAIR DISKUS 100/50 [Concomitant]
  3. BENICAR [Concomitant]
  4. MOBIC [Concomitant]
  5. HYDROCODONE (HYDROCODONE) [Concomitant]
  6. LEVOTHROID [Concomitant]
  7. ALBUTEROL [Concomitant]
  8. VYTORIN [Concomitant]

REACTIONS (2)
  - AGITATION [None]
  - INSOMNIA [None]
